FAERS Safety Report 15844664 (Version 2)
Quarter: 2019Q1

REPORT INFORMATION
  Report Type: Report from Study
  Country: US (occurrence: US)
  Receive Date: 20190118
  Receipt Date: 20190226
  Transmission Date: 20190417
  Serious: No
  Sender: FDA-Public Use
  Company Number: PHEH2019US001703

PATIENT
  Sex: Male
  Weight: 96.62 kg

DRUGS (1)
  1. COSENTYX [Suspect]
     Active Substance: SECUKINUMAB
     Indication: PSORIASIS
     Dosage: 300 MG, QMO
     Route: 058
     Dates: start: 20181128

REACTIONS (6)
  - Swelling [Unknown]
  - Weight increased [Unknown]
  - Infection [Recovering/Resolving]
  - Psoriasis [Unknown]
  - Skin wound [Unknown]
  - Drug ineffective [Unknown]
